FAERS Safety Report 17954628 (Version 4)
Quarter: 2021Q2

REPORT INFORMATION
  Report Type: Spontaneous
  Country: US (occurrence: US)
  Receive Date: 20200629
  Receipt Date: 20210625
  Transmission Date: 20210717
  Serious: Yes (Hospitalization, Other)
  Sender: FDA-Public Use
  Company Number: US-GILEAD-2020-0476827

PATIENT
  Age: 35 Year
  Sex: Male
  Weight: 214 kg

DRUGS (59)
  1. ZOLOFT [Concomitant]
     Active Substance: SERTRALINE HYDROCHLORIDE
  2. LYRICA [Concomitant]
     Active Substance: PREGABALIN
  3. DOXYCYCLINE. [Concomitant]
     Active Substance: DOXYCYCLINE
  4. SUMATRIPTAN. [Concomitant]
     Active Substance: SUMATRIPTAN
  5. VIREAD [Suspect]
     Active Substance: TENOFOVIR DISOPROXIL FUMARATE
     Indication: HIV INFECTION
     Dosage: UNK
     Route: 065
     Dates: start: 2001, end: 20031029
  6. TRUVADA [Suspect]
     Active Substance: EMTRICITABINE\TENOFOVIR DISOPROXIL FUMARATE
     Dosage: UNK
     Route: 065
     Dates: start: 20100728, end: 20141016
  7. JULUCA [Concomitant]
     Active Substance: DOLUTEGRAVIR SODIUM\RILPIVIRINE HYDROCHLORIDE
  8. PERCOCET [OXYCODONE HYDROCHLORIDE;OXYCODONE TEREPHTHALATE;PARACETAMOL] [Concomitant]
     Active Substance: ACETAMINOPHEN\OXYCODONE HYDROCHLORIDE\OXYCODONE TEREPHTHALATE
  9. ALBUTEROL HFA [Concomitant]
     Active Substance: ALBUTEROL SULFATE
  10. AMOXICILLIN. [Concomitant]
     Active Substance: AMOXICILLIN
  11. LASIX [Concomitant]
     Active Substance: FUROSEMIDE
  12. BISOPROLOL [Concomitant]
     Active Substance: BISOPROLOL
  13. TOPROL XL [Concomitant]
     Active Substance: METOPROLOL SUCCINATE
  14. CYCLOBENZAPRINE. [Concomitant]
     Active Substance: CYCLOBENZAPRINE
  15. ZOFRAN [Concomitant]
     Active Substance: ONDANSETRON HYDROCHLORIDE
  16. PROMETHAZINE [Concomitant]
     Active Substance: PROMETHAZINE HYDROCHLORIDE
  17. VALIUM [Concomitant]
     Active Substance: DIAZEPAM
  18. AVELOX [Concomitant]
     Active Substance: MOXIFLOXACIN HYDROCHLORIDE
  19. SYMBICORT [Concomitant]
     Active Substance: BUDESONIDE\FORMOTEROL FUMARATE DIHYDRATE
  20. HYDROCORTISONE. [Concomitant]
     Active Substance: HYDROCORTISONE
  21. FENTANYL. [Concomitant]
     Active Substance: FENTANYL
  22. LEVITRA [Concomitant]
     Active Substance: VARDENAFIL HYDROCHLORIDE
  23. SILDENAFIL. [Concomitant]
     Active Substance: SILDENAFIL
  24. ERYTHROMYCIN. [Concomitant]
     Active Substance: ERYTHROMYCIN
  25. LEVOFLOXACIN. [Concomitant]
     Active Substance: LEVOFLOXACIN
  26. EPIVIR [Concomitant]
     Active Substance: LAMIVUDINE
  27. NORVIR [Concomitant]
     Active Substance: RITONAVIR
  28. SERTRALINE [Concomitant]
     Active Substance: SERTRALINE HYDROCHLORIDE
  29. OMEPRAZOLE. [Concomitant]
     Active Substance: OMEPRAZOLE
  30. PREDNISOLONE. [Concomitant]
     Active Substance: PREDNISOLONE
  31. PREDNISONE. [Concomitant]
     Active Substance: PREDNISONE
  32. ENDOCET [Concomitant]
     Active Substance: ACETAMINOPHEN\OXYCODONE HYDROCHLORIDE
  33. TRUVADA [Suspect]
     Active Substance: EMTRICITABINE\TENOFOVIR DISOPROXIL FUMARATE
     Indication: HIV INFECTION
     Dosage: UNK
     Route: 048
     Dates: start: 2005, end: 2018
  34. AMLODIPINE [Concomitant]
     Active Substance: AMLODIPINE BESYLATE
  35. SULFAMETHOXAZOLE [Concomitant]
     Active Substance: SULFAMETHOXAZOLE
  36. VALACYCLOVIR [Concomitant]
     Active Substance: VALACYCLOVIR HYDROCHLORIDE
  37. HYDROMORPHONE [Concomitant]
     Active Substance: HYDROMORPHONE
  38. TRUVADA [Suspect]
     Active Substance: EMTRICITABINE\TENOFOVIR DISOPROXIL FUMARATE
     Dosage: UNK
     Route: 048
     Dates: start: 2005, end: 20150403
  39. ISENTRESS [Concomitant]
     Active Substance: RALTEGRAVIR POTASSIUM
  40. PREZISTA [Concomitant]
     Active Substance: DARUNAVIR ETHANOLATE
  41. TRIUMEQ [Concomitant]
     Active Substance: ABACAVIR SULFATE\DOLUTEGRAVIR SODIUM\LAMIVUDINE
  42. OXYCODONE [Concomitant]
     Active Substance: OXYCODONE
  43. WARFARIN [Concomitant]
     Active Substance: WARFARIN
  44. MELOXICAM. [Concomitant]
     Active Substance: MELOXICAM
  45. MUPIROCIN. [Concomitant]
     Active Substance: MUPIROCIN
  46. POLYETHYLENE GLYCOL 3350. [Concomitant]
     Active Substance: POLYETHYLENE GLYCOL 3350
  47. COLCRYS [Concomitant]
     Active Substance: COLCHICINE
  48. GOODY [Concomitant]
  49. METRONIDAZOLE. [Concomitant]
     Active Substance: METRONIDAZOLE
  50. INVIRASE [Concomitant]
     Active Substance: SAQUINAVIR MESYLATE
  51. PRINIVIL [Concomitant]
     Active Substance: LISINOPRIL
  52. INDOMETHACIN SODIUM [Concomitant]
     Active Substance: INDOMETHACIN SODIUM
  53. CEPHALEXINE [Concomitant]
     Active Substance: CEPHALEXIN
  54. MEGACE [Concomitant]
     Active Substance: MEGESTROL ACETATE
  55. KALETRA [Concomitant]
     Active Substance: LOPINAVIR\RITONAVIR
  56. NEURONTIN [Concomitant]
     Active Substance: GABAPENTIN
  57. OPANA [Concomitant]
     Active Substance: OXYMORPHONE HYDROCHLORIDE
  58. PROAIR HFA [Concomitant]
     Active Substance: ALBUTEROL SULFATE
  59. AZITHROMYCIN ANHYDROUS. [Concomitant]
     Active Substance: AZITHROMYCIN ANHYDROUS

REACTIONS (16)
  - Knee arthroplasty [Unknown]
  - Hip arthroplasty [Unknown]
  - Bone loss [Unknown]
  - Rib fracture [Not Recovered/Not Resolved]
  - Acute kidney injury [Recovered/Resolved]
  - Multiple fractures [Unknown]
  - Bone density decreased [Unknown]
  - Hip arthroplasty [Unknown]
  - Chronic kidney disease [Not Recovered/Not Resolved]
  - End stage renal disease [Not Recovered/Not Resolved]
  - Wrist fracture [Recovered/Resolved]
  - Osteonecrosis [Not Recovered/Not Resolved]
  - Osteopenia [Not Recovered/Not Resolved]
  - Osteonecrosis [Not Recovered/Not Resolved]
  - Renal failure [Not Recovered/Not Resolved]
  - Tooth loss [Not Recovered/Not Resolved]

NARRATIVE: CASE EVENT DATE: 20030212
